FAERS Safety Report 8604505-9 (Version None)
Quarter: 2012Q3

REPORT INFORMATION
  Report Type: 
  Country: None (occurrence: None)
  Receive Date: 20120820
  Receipt Date: 20120807
  Transmission Date: 20120928
  Serious: Yes (Hospitalization)
  Sender: FDA-Public Use
  Company Number: GB-JNJFOC-20120806207

PATIENT
  Age: 48 Year
  Sex: Female

DRUGS (6)
  1. DARUNAVIR ETHANOLATE [Suspect]
     Indication: HIV INFECTION
     Route: 048
  2. MONTELUKAST [Interacting]
     Indication: ASTHMA
     Route: 048
  3. RITONAVIR [Suspect]
     Indication: HIV INFECTION
     Route: 065
  4. EMTRICITABINE [Suspect]
     Indication: HIV INFECTION
     Route: 065
  5. SYMBICORT [Interacting]
     Indication: ASTHMA
     Dosage: BUDESONIDE 400 MICROGRAM/FORMOTEROL 12 MICROGRAM, 2 PUFFS FOR THE PAST 18 MONTHS
     Route: 055
  6. EFAVIRENZ [Suspect]
     Indication: HIV INFECTION
     Route: 065

REACTIONS (4)
  - DRUG INTERACTION [None]
  - SINUS TACHYCARDIA [None]
  - PULMONARY EMBOLISM [None]
  - CUSHINGOID [None]
